FAERS Safety Report 9670780 (Version 2)
Quarter: 2013Q4

REPORT INFORMATION
  Report Type: Report from Study
  Country: CN (occurrence: CN)
  Receive Date: 20131106
  Receipt Date: 20131108
  Transmission Date: 20140711
  Serious: Yes (Death, Other)
  Sender: FDA-Public Use
  Company Number: CN-ROCHE-1300181

PATIENT
  Age: 47 Year
  Sex: Male
  Weight: 90 kg

DRUGS (1)
  1. AVASTIN [Suspect]
     Indication: COLON CANCER
     Route: 042
     Dates: start: 20130208, end: 20130621

REACTIONS (4)
  - Disease progression [Fatal]
  - Protein urine present [Unknown]
  - Blood pressure increased [Unknown]
  - Renal failure [Unknown]
